FAERS Safety Report 4270982-X (Version None)
Quarter: 2004Q1

REPORT INFORMATION
  Report Type: 
  Country: None (occurrence: None)
  Receive Date: 20040114
  Receipt Date: 20031219
  Transmission Date: 20041129
  Serious: Yes (Hospitalization)
  Sender: FDA-Public Use
  Company Number: WAES 0312USA02233

PATIENT
  Age: 45 Year
  Sex: Male

DRUGS (6)
  1. ALBUTEROL [Concomitant]
  2. TIAZAC [Concomitant]
  3. SINGULAIR [Suspect]
     Route: 048
     Dates: start: 20010101, end: 20030101
  4. PROTONIX [Concomitant]
  5. ULTRAM [Concomitant]
  6. AMBIEN [Concomitant]

REACTIONS (2)
  - CARDIOMYOPATHY [None]
  - EOSINOPHILIC PNEUMONIA [None]
